FAERS Safety Report 24247368 (Version 2)
Quarter: 2024Q3

REPORT INFORMATION
  Report Type: Spontaneous
  Country: US (occurrence: US)
  Receive Date: 20240826
  Receipt Date: 20240828
  Transmission Date: 20241016
  Serious: Yes (Death, Other)
  Sender: BAXTER
  Company Number: US-BAXTER-2024BAX023166

PATIENT
  Age: 0 Year
  Weight: 7 kg

DRUGS (2)
  1. HEPARIN SODIUM [Suspect]
     Active Substance: HEPARIN SODIUM
     Indication: Continuous haemodiafiltration
     Dosage: UNK
     Route: 010
  2. HEPARIN SODIUM [Suspect]
     Active Substance: HEPARIN SODIUM
     Indication: Coagulopathy

REACTIONS (6)
  - Death [Fatal]
  - Cardiac arrest [Unknown]
  - Unresponsive to stimuli [Unknown]
  - Apnoea [Unknown]
  - Bradycardia [Unknown]
  - Metabolic acidosis [Unknown]

NARRATIVE: CASE EVENT DATE: 20240427
